FAERS Safety Report 10824024 (Version 1)
Quarter: 2015Q1

REPORT INFORMATION
  Report Type: Report from Study
  Country: US (occurrence: US)
  Receive Date: 20150219
  Receipt Date: 20150219
  Transmission Date: 20150721
  Serious: No
  Sender: FDA-Public Use
  Company Number: US-ABBVIE-14K-163-1312437-00

PATIENT
  Age: 51 Year
  Sex: Female

DRUGS (1)
  1. HUMIRA [Suspect]
     Active Substance: ADALIMUMAB
     Indication: RHEUMATOID ARTHRITIS
     Route: 065
     Dates: start: 20141007, end: 20141105

REACTIONS (10)
  - Peripheral swelling [Not Recovered/Not Resolved]
  - Skin fissures [Unknown]
  - Feeling hot [Recovered/Resolved]
  - Swelling face [Unknown]
  - Hyperhidrosis [Recovered/Resolved]
  - Pain of skin [Unknown]
  - Skin exfoliation [Unknown]
  - Erythema [Unknown]
  - Flushing [Recovered/Resolved]
  - Pruritus generalised [Recovered/Resolved]

NARRATIVE: CASE EVENT DATE: 20141007
